FAERS Safety Report 17854231 (Version 1)
Quarter: 2020Q2

REPORT INFORMATION
  Report Type: Spontaneous
  Country: US (occurrence: US)
  Receive Date: 20200603
  Receipt Date: 20200603
  Transmission Date: 20200714
  Serious: Yes (Disabling)
  Sender: FDA-Public Use
  Company Number: US-ELI_LILLY_AND_COMPANY-US202005011137

PATIENT
  Sex: Male

DRUGS (2)
  1. HUMULIN N [Suspect]
     Active Substance: INSULIN HUMAN
     Indication: TYPE 2 DIABETES MELLITUS
     Dosage: 120 U, DAILY
     Route: 058
     Dates: start: 2015
  2. HUMULIN N [Suspect]
     Active Substance: INSULIN HUMAN
     Dosage: 120 U, DAILY
     Route: 058

REACTIONS (2)
  - Spondylitis [Unknown]
  - Arthritis [Unknown]

NARRATIVE: CASE EVENT DATE: 2015
